FAERS Safety Report 5358874-6 (Version None)
Quarter: 2007Q2

REPORT INFORMATION
  Report Type: 
  Country: None (occurrence: None)
  Receive Date: 20070601
  Receipt Date: 20070426
  Transmission Date: 20071010
  Serious: No
  Sender: FDA-Public Use
  Company Number: PHEH2007US06523

PATIENT
  Age: 80 Year
  Sex: Female

DRUGS (3)
  1. ENABLEX [Suspect]
     Indication: HYPERTONIC BLADDER
     Dosage: 7.5 MG, QD
     Dates: start: 20070416, end: 20070417
  2. TOPROL-XL [Concomitant]
  3. COUMADIN [Concomitant]

REACTIONS (2)
  - ASTHENIA [None]
  - NAUSEA [None]
